FAERS Safety Report 7211251-5 (Version None)
Quarter: 2011Q1

REPORT INFORMATION
  Report Type: 
  Country: None (occurrence: None)
  Receive Date: 20110105
  Receipt Date: 20101229
  Transmission Date: 20110831
  Serious: Yes (Other)
  Sender: FDA-Public Use
  Company Number: US-US-EMD SERONO, INC.-7034010

PATIENT
  Sex: Female

DRUGS (2)
  1. DILANTIN [Concomitant]
  2. REBIF [Suspect]
     Indication: PRODUCT USED FOR UNKNOWN INDICATION
     Route: 058
     Dates: start: 20100125

REACTIONS (4)
  - MENSTRUAL DISCOMFORT [None]
  - INJECTION SITE ERYTHEMA [None]
  - FALL [None]
  - TOXICITY TO VARIOUS AGENTS [None]
